FAERS Safety Report 24322714 (Version 1)
Quarter: 2024Q3

REPORT INFORMATION
  Report Type: Spontaneous
  Country: US (occurrence: None)
  Receive Date: 20240913
  Receipt Date: 20240913
  Transmission Date: 20241017
  Serious: Yes (Other)
  Sender: Public
  Company Number: None

PATIENT
  Age: 77 Year
  Sex: Female

DRUGS (2)
  1. BOTOX [Suspect]
     Active Substance: ONABOTULINUMTOXINA
     Indication: Extrapyramidal disorder
     Dosage: OTHER FREQUENCY : EVERY 84 DAYS;?
     Route: 030
     Dates: start: 20210831
  2. BOTOX [Suspect]
     Active Substance: ONABOTULINUMTOXINA
     Indication: Movement disorder

REACTIONS (1)
  - Tonsil cancer [None]

NARRATIVE: CASE EVENT DATE: 20240501
